FAERS Safety Report 10051375 (Version 2)
Quarter: 2014Q3

REPORT INFORMATION
  Report Type: Spontaneous
  Country: US (occurrence: IT)
  Receive Date: 20140401
  Receipt Date: 20140722
  Transmission Date: 20150326
  Serious: Yes (Hospitalization)
  Sender: FDA-Public Use
  Company Number: IT-FRI-1000065888

PATIENT
  Age: 57 Year
  Sex: Male

DRUGS (3)
  1. NOZINAN [Suspect]
     Active Substance: LEVOMEPROMAZINE
     Indication: DRUG ABUSE
     Route: 048
     Dates: start: 20140314, end: 20140314
  2. SEREUPIN [Concomitant]
     Active Substance: PAROXETINE HYDROCHLORIDE
  3. ASENAPINE [Suspect]
     Active Substance: ASENAPINE
     Indication: DRUG ABUSE
     Route: 048
     Dates: start: 20140314, end: 20140314

REACTIONS (3)
  - Bradykinesia [Recovering/Resolving]
  - Sopor [Recovering/Resolving]
  - Drug abuse [Recovering/Resolving]

NARRATIVE: CASE EVENT DATE: 20140314
